FAERS Safety Report 24129165 (Version 1)
Quarter: 2024Q3

REPORT INFORMATION
  Report Type: Spontaneous
  Country: US (occurrence: US)
  Receive Date: 20240723
  Receipt Date: 20240723
  Transmission Date: 20241017
  Serious: No
  Sender: MYLAN
  Company Number: US-MYLANLABS-2024M1067653

PATIENT
  Sex: Female

DRUGS (9)
  1. ALPRAZOLAM [Interacting]
     Active Substance: ALPRAZOLAM
     Indication: Anxiety
     Dosage: UNK
     Route: 065
     Dates: start: 2024
  2. LUMRYZ [Interacting]
     Active Substance: SODIUM OXYBATE
     Indication: Narcolepsy
     Dosage: 9 GRAM, QD (ONCE NIGHTLY)
     Route: 048
     Dates: start: 2024, end: 2024
  3. LUMRYZ [Interacting]
     Active Substance: SODIUM OXYBATE
     Dosage: 4.5 GRAM, QD (ONCE NIGHTLY)
     Route: 048
     Dates: start: 2024, end: 2024
  4. LUMRYZ [Interacting]
     Active Substance: SODIUM OXYBATE
     Dosage: 6 GRAM, QD (ONCE NIGHTLY)
     Route: 048
     Dates: start: 2024, end: 20240509
  5. LUMRYZ [Interacting]
     Active Substance: SODIUM OXYBATE
     Dosage: 7.5 GRAM, QD (ONCE NIGHTLY)
     Route: 048
     Dates: start: 20240510, end: 2024
  6. BUSPIRONE [Suspect]
     Active Substance: BUSPIRONE HYDROCHLORIDE
     Indication: Anxiety
     Dosage: 15 MILLIGRAM, BID (TWICE DAILY)
     Route: 065
     Dates: start: 2024, end: 2024
  7. BUSPIRONE [Suspect]
     Active Substance: BUSPIRONE HYDROCHLORIDE
     Dosage: UNK (TAPERED DOWN)
     Route: 065
     Dates: start: 2024, end: 2024
  8. SERTRALINE [Concomitant]
     Active Substance: SERTRALINE HYDROCHLORIDE
     Dosage: UNK
     Route: 065
  9. ADDERALL [Concomitant]
     Active Substance: AMPHETAMINE ASPARTATE\AMPHETAMINE SULFATE\DEXTROAMPHETAMINE SACCHARATE\DEXTROAMPHETAMINE SULFATE
     Dosage: UNK
     Route: 065

REACTIONS (1)
  - Labelled drug-drug interaction issue [Unknown]
